FAERS Safety Report 5265980-3 (Version None)
Quarter: 2007Q1

REPORT INFORMATION
  Report Type: 
  Country: None (occurrence: None)
  Receive Date: 20070315
  Receipt Date: 20070306
  Transmission Date: 20070707
  Serious: Yes (Hospitalization)
  Sender: FDA-Public Use
  Company Number: 2007SE01307

PATIENT
  Age: 26025 Day
  Sex: Female

DRUGS (5)
  1. ATACAND [Suspect]
     Indication: ESSENTIAL HYPERTENSION
     Route: 048
     Dates: end: 20061208
  2. ATACAND [Suspect]
     Route: 048
     Dates: start: 20061209
  3. NORMORIX [Concomitant]
  4. PLENDIL [Concomitant]
  5. ZOLPIDEM TARTRATE [Concomitant]

REACTIONS (2)
  - ORTHOSTATIC HYPOTENSION [None]
  - SYNCOPE [None]
